FAERS Safety Report 13038861 (Version 1)
Quarter: 2016Q4

REPORT INFORMATION
  Report Type: Spontaneous
  Country: US (occurrence: US)
  Receive Date: 20161219
  Receipt Date: 20161219
  Transmission Date: 20170207
  Serious: Yes (Other)
  Sender: FDA-Public Use
  Company Number: US-ROCHE-1868579

PATIENT
  Sex: Male

DRUGS (1)
  1. KLONOPIN [Suspect]
     Active Substance: CLONAZEPAM
     Indication: ANXIETY
     Route: 048
     Dates: start: 2006, end: 2013

REACTIONS (4)
  - Withdrawal syndrome [Not Recovered/Not Resolved]
  - Blood pressure fluctuation [Unknown]
  - Abasia [Unknown]
  - Heart rate irregular [Unknown]
